FAERS Safety Report 12680730 (Version 1)
Quarter: 2016Q3

REPORT INFORMATION
  Report Type: Spontaneous
  Country: IT (occurrence: IT)
  Receive Date: 20160824
  Receipt Date: 20160824
  Transmission Date: 20161109
  Serious: Yes (Death, Other)
  Sender: FDA-Public Use
  Company Number: IT-CELLTRION INC.-2016IT007990

PATIENT

DRUGS (1)
  1. INFLIXIMAB [Suspect]
     Active Substance: INFLIXIMAB
     Indication: TOXIC EPIDERMAL NECROLYSIS
     Dosage: 5 MG/KG, DAILY
     Route: 042

REACTIONS (3)
  - Pneumonia [Unknown]
  - Sepsis [Fatal]
  - Off label use [Unknown]
